FAERS Safety Report 5390021-7 (Version None)
Quarter: 2007Q3

REPORT INFORMATION
  Report Type: 
  Country: None (occurrence: None)
  Receive Date: 20070713
  Receipt Date: 20070629
  Transmission Date: 20080115
  Serious: Yes (Hospitalization)
  Sender: FDA-Public Use
  Company Number: SPV1-2007-03402

PATIENT
  Age: 52 Year
  Sex: Male

DRUGS (4)
  1. PENTASA [Suspect]
     Indication: COLITIS ULCERATIVE
     Dosage: 500 MG, 3X/ DAY:TID, ORAL, 750 MG, 1X/DAY; QD, ORAL
     Route: 048
     Dates: start: 20070316, end: 20070406
  2. PENTASA [Suspect]
     Indication: COLITIS ULCERATIVE
     Dosage: 500 MG, 3X/ DAY:TID, ORAL, 750 MG, 1X/DAY; QD, ORAL
     Route: 048
     Dates: start: 20070508, end: 20070517
  3. PENTASA [Suspect]
     Indication: COLITIS ULCERATIVE
     Dosage: 1000 MG, 1X/ DAY:QD, RECTAL
     Route: 054
     Dates: start: 20070316, end: 20070406
  4. TIQUIZIUM BROMIDE [Concomitant]

REACTIONS (6)
  - ARTHRALGIA [None]
  - BACK PAIN [None]
  - COLITIS ULCERATIVE [None]
  - CONDITION AGGRAVATED [None]
  - PAIN IN JAW [None]
  - PYREXIA [None]
